FAERS Safety Report 12586868 (Version 2)
Quarter: 2016Q3

REPORT INFORMATION
  Report Type: Report from Study
  Country: US (occurrence: US)
  Receive Date: 20160725
  Receipt Date: 20160802
  Transmission Date: 20161109
  Serious: Yes (Death, Life-Threatening, Hospitalization)
  Sender: FDA-Public Use
  Company Number: US-JNJFOC-20160718280

PATIENT
  Age: 66 Year
  Sex: Male

DRUGS (2)
  1. IBRUTINIB [Suspect]
     Active Substance: IBRUTINIB
     Indication: THERAPY NAIVE
     Route: 048
     Dates: start: 20150716, end: 20160629
  2. IBRUTINIB [Suspect]
     Active Substance: IBRUTINIB
     Indication: CHRONIC LYMPHOCYTIC LEUKAEMIA
     Route: 048
     Dates: start: 20150716, end: 20160629

REACTIONS (4)
  - Infection [None]
  - Multiple organ dysfunction syndrome [Fatal]
  - Pneumonia aspiration [None]
  - Haemorrhage [None]

NARRATIVE: CASE EVENT DATE: 20160701
